FAERS Safety Report 20834548 (Version 1)
Quarter: 2022Q2

REPORT INFORMATION
  Report Type: Spontaneous
  Country: DE (occurrence: DE)
  Receive Date: 20220516
  Receipt Date: 20220516
  Transmission Date: 20220720
  Serious: Yes (Hospitalization, Other)
  Sender: FDA-Public Use
  Company Number: DE-NOVARTISPH-NVSC2022DE106613

PATIENT
  Sex: Female

DRUGS (9)
  1. PREDNISOLONE [Suspect]
     Active Substance: PREDNISOLONE
     Indication: Product used for unknown indication
     Dosage: 50 MG, (30 MINUTES BEFORE VACCINATION AND 6 HOURS AFTER THE VACCINATION)
     Route: 030
     Dates: start: 20210510
  2. ASPIRIN [Suspect]
     Active Substance: ASPIRIN
     Indication: Product used for unknown indication
     Dosage: 1 GRAM
     Route: 065
     Dates: start: 20210510
  3. ASPIRIN [Suspect]
     Active Substance: ASPIRIN
     Dosage: 1 GRAM
     Route: 065
     Dates: start: 20210517
  4. LORATADINE [Suspect]
     Active Substance: LORATADINE
     Indication: Product used for unknown indication
     Dosage: 1 TABLET 30 MINUTES BEFORE VACCINATION AND 6 HOURS AFTER THE VACCINATION
     Route: 065
     Dates: start: 20210510
  5. AMINO ACIDS [Suspect]
     Active Substance: AMINO ACIDS
     Indication: Protein deficiency
     Dosage: 1 DOSAGE FORM, QW (BEFORE 2 TIMES PER WEEK 1 TIME PER WEEK SINCE 23FEB2015, 14:00 TIL 21:00, 7 HOURS
     Route: 065
     Dates: start: 20150223
  6. AMINO ACIDS [Suspect]
     Active Substance: AMINO ACIDS
     Dosage: WEEKLY ON MONDAYS (ADMINISTRATION TIME: 3 P.M. -5:30 P.M) (E INFUSIONSL?SUNG)
     Route: 065
     Dates: start: 20210510
  7. AMINO ACIDS [Suspect]
     Active Substance: AMINO ACIDS
     Dosage: WEEKLY ON MONDAYS (ADMINISTRATION TIME: 3 P.M. -5:30 P.M) (E INFUSIONSL?SUNG)
     Route: 065
     Dates: start: 20210517
  8. AMINO ACIDS [Suspect]
     Active Substance: AMINO ACIDS
     Dosage: WEEKLY ON MONDAYS (ADMINISTRATION TIME: 3 P.M. -5:30 P.M) (E INFUSIONSL?SUNG)
     Route: 065
     Dates: start: 20210531, end: 20210531
  9. AMINO ACIDS [Suspect]
     Active Substance: AMINO ACIDS
     Dosage: 1 DOSAGE FORM, QW (BEFORE 2 TIMES PER WEEK 1 TIME PER WEEK SINCE 23FEB2015, 14:00 TIL 21:00, 7 HOURS
     Route: 065
     Dates: end: 20220328

REACTIONS (11)
  - Vomiting [Recovering/Resolving]
  - Dyspnoea [Unknown]
  - Device related sepsis [Unknown]
  - Abdominal pain [Recovering/Resolving]
  - Hypotension [Unknown]
  - Diarrhoea [Unknown]
  - Tachycardia [Unknown]
  - Body temperature increased [Unknown]
  - Pruritus [Unknown]
  - Nausea [Recovering/Resolving]
  - Vascular device infection [Unknown]

NARRATIVE: CASE EVENT DATE: 20210510
